FAERS Safety Report 22156747 (Version 1)
Quarter: 2023Q1

REPORT INFORMATION
  Report Type: Spontaneous
  Country: GR (occurrence: GR)
  Receive Date: 20230330
  Receipt Date: 20230330
  Transmission Date: 20230418
  Serious: Yes (Hospitalization, Other)
  Sender: FDA-Public Use
  Company Number: GR-PFIZER INC-202300130483

PATIENT
  Age: 55 Year
  Sex: Male

DRUGS (1)
  1. TAVOR (LORAZEPAM) [Suspect]
     Active Substance: LORAZEPAM
     Dosage: UNK (10MG PER MONTH)

REACTIONS (5)
  - Allergic reaction to excipient [Unknown]
  - Rash [Unknown]
  - Angioedema [Unknown]
  - Dyspnoea [Unknown]
  - Ocular hyperaemia [Unknown]
